FAERS Safety Report 22779895 (Version 4)
Quarter: 2024Q1

REPORT INFORMATION
  Report Type: Report from Study
  Country: CA (occurrence: CA)
  Receive Date: 20230803
  Receipt Date: 20240124
  Transmission Date: 20240410
  Serious: Yes (Other)
  Sender: FDA-Public Use
  Company Number: CA-JNJFOC-20230710169

PATIENT
  Age: 57 Year
  Sex: Female

DRUGS (2)
  1. REMICADE [Suspect]
     Active Substance: INFLIXIMAB
     Indication: Rheumatoid arthritis
     Dosage: EXPIRY: APR-2026
     Route: 041
     Dates: start: 20120816
  2. REMICADE [Suspect]
     Active Substance: INFLIXIMAB
     Indication: Psoriasis
     Route: 041
     Dates: end: 20231128

REACTIONS (13)
  - Pneumonia [Recovered/Resolved]
  - Abdominal wall disorder [Not Recovered/Not Resolved]
  - Fall [Unknown]
  - Back injury [Recovered/Resolved]
  - Ankle fracture [Unknown]
  - Supraventricular tachycardia [Unknown]
  - Psoriasis [Not Recovered/Not Resolved]
  - Urinary tract infection [Recovered/Resolved]
  - Upper limb fracture [Unknown]
  - Malaise [Unknown]
  - Gait disturbance [Unknown]
  - Insomnia [Unknown]
  - Pain [Unknown]

NARRATIVE: CASE EVENT DATE: 20230619
